FAERS Safety Report 23663976 (Version 1)
Quarter: 2024Q1

REPORT INFORMATION
  Report Type: Other
  Country: US (occurrence: US)
  Receive Date: 20240322
  Receipt Date: 20240322
  Transmission Date: 20240410
  Serious: Yes (Death)
  Sender: FDA-Public Use
  Company Number: US-Bion-012709

PATIENT
  Age: 30 Year
  Sex: Female

DRUGS (4)
  1. DEXAMETHASONE [Suspect]
     Active Substance: DEXAMETHASONE
     Indication: Angiocentric lymphoma
  2. CISPLATIN [Concomitant]
     Active Substance: CISPLATIN
     Indication: Angiocentric lymphoma
  3. GEMCITABINE [Concomitant]
     Active Substance: GEMCITABINE
     Indication: Angiocentric lymphoma
  4. PEGASPARGASE [Concomitant]
     Active Substance: PEGASPARGASE
     Indication: Angiocentric lymphoma

REACTIONS (1)
  - Drug ineffective [Fatal]
